FAERS Safety Report 11293497 (Version 1)
Quarter: 2015Q3

REPORT INFORMATION
  Report Type: Spontaneous
  Country: GB (occurrence: GB)
  Receive Date: 20150722
  Receipt Date: 20150722
  Transmission Date: 20151125
  Serious: Yes (Disabling, Other)
  Sender: FDA-Public Use
  Company Number: GB-ELI_LILLY_AND_COMPANY-GB201507003455

PATIENT
  Age: 30 Year
  Sex: Female
  Weight: 70 kg

DRUGS (7)
  1. AMITRIPTYLINE [Concomitant]
     Active Substance: AMITRIPTYLINE
     Dosage: 25 MG, UNK
  2. BUSCOPAN [Concomitant]
     Active Substance: BUTYLSCOPOLAMINE BROMIDE
     Dosage: UNK
  3. ANADIN EXTRA [Concomitant]
     Active Substance: ACETAMINOPHEN\ASPIRIN\CAFFEINE
     Dosage: UNK
  4. CYCLIZINE HYDROCHLORIDE [Concomitant]
     Active Substance: CYCLIZINE HYDROCHLORIDE
     Dosage: UNK
  5. PREGABALIN. [Concomitant]
     Active Substance: PREGABALIN
     Dosage: 25 MG, UNK
  6. XERISTAR [Suspect]
     Active Substance: DULOXETINE HYDROCHLORIDE
     Indication: FIBROMYALGIA
     Dosage: 30 MG, EACH MORNING
     Route: 048
     Dates: start: 20150216, end: 20150504
  7. ESOMEPRAZOLE [Concomitant]
     Active Substance: ESOMEPRAZOLE
     Dosage: 20 MG, UNK

REACTIONS (8)
  - Irritable bowel syndrome [Recovering/Resolving]
  - Drug withdrawal syndrome [Recovering/Resolving]
  - Paraesthesia [Recovered/Resolved with Sequelae]
  - Headache [Recovered/Resolved with Sequelae]
  - Abdominal pain upper [Recovering/Resolving]
  - Syncope [Unknown]
  - Malaise [Recovering/Resolving]
  - Diarrhoea [Recovering/Resolving]

NARRATIVE: CASE EVENT DATE: 20150217
